FAERS Safety Report 5705883-0 (Version None)
Quarter: 2008Q2

REPORT INFORMATION
  Report Type: 
  Country: None (occurrence: None)
  Receive Date: 20080411
  Receipt Date: 20080403
  Transmission Date: 20081010
  Serious: Yes (Hospitalization)
  Sender: FDA-Public Use
  Company Number: 2008SP005495

PATIENT
  Age: 56 Year
  Sex: Male
  Weight: 95.2554 kg

DRUGS (13)
  1. PEG-INTRON [Suspect]
     Indication: HEPATITIS C
     Dates: start: 20070406, end: 20080229
  2. RIBAVIRIN [Suspect]
     Indication: HEPATITIS C
     Dosage: ; PO
     Route: 048
     Dates: start: 20070406, end: 20080229
  3. PROGRAF [Suspect]
     Indication: IMMUNOSUPPRESSION
     Dosage: 2 MG; QAM; PO, 1 MG; QPM; PO
     Route: 048
     Dates: start: 20070126
  4. PROGRAF [Suspect]
     Indication: IMMUNOSUPPRESSION
     Dosage: 2 MG; QAM; PO, 1 MG; QPM; PO
     Route: 048
     Dates: start: 20070126
  5. METOPROLOL TARTRATE [Concomitant]
  6. PRILOSEC [Concomitant]
  7. LASIX [Concomitant]
  8. BACTRIM DS [Concomitant]
  9. PROCRIT [Concomitant]
  10. NEUPOGEN [Concomitant]
  11. FERROUS SULFATE TAB [Concomitant]
  12. LOMOTIL [Concomitant]
  13. FISH OIL [Concomitant]

REACTIONS (4)
  - BLOOD POTASSIUM INCREASED [None]
  - HEPATITIS C ANTIBODY POSITIVE [None]
  - HYPERKALAEMIA [None]
  - LIVER TRANSPLANT REJECTION [None]
